FAERS Safety Report 13866864 (Version 1)
Quarter: 2017Q3

REPORT INFORMATION
  Report Type: Report from Study
  Country: US (occurrence: US)
  Receive Date: 20170814
  Receipt Date: 20170814
  Transmission Date: 20171127
  Serious: No
  Sender: FDA-Public Use
  Company Number: US-ACADIA PHARMACEUTICALS INC.-ACA-2017-004370

PATIENT
  Age: 60 Year
  Sex: Male
  Weight: 77.98 kg

DRUGS (2)
  1. NUPLAZID [Suspect]
     Active Substance: PIMAVANSERIN TARTRATE
     Indication: PARKINSON^S DISEASE
     Dosage: 34 MG, QD
     Route: 048
     Dates: start: 201706, end: 20170619
  2. SINEMET [Concomitant]
     Active Substance: CARBIDOPA\LEVODOPA
     Indication: PRODUCT USED FOR UNKNOWN INDICATION

REACTIONS (6)
  - Speech disorder [Unknown]
  - Confusional state [Unknown]
  - Hallucination [Unknown]
  - Amnesia [Unknown]
  - Disorientation [Unknown]
  - Insomnia [Unknown]

NARRATIVE: CASE EVENT DATE: 20170619
